FAERS Safety Report 8203677-8 (Version None)
Quarter: 2012Q1

REPORT INFORMATION
  Report Type: 
  Country: None (occurrence: None)
  Receive Date: 20120308
  Receipt Date: 20120301
  Transmission Date: 20120608
  Serious: Yes (Death)
  Sender: FDA-Public Use
  Company Number: AUR-APL-2012-01240

PATIENT
  Age: 22 Year
  Sex: Female
  Weight: 53.5 kg

DRUGS (3)
  1. MORPHINE SULFATE INJ [Suspect]
     Indication: PRODUCT USED FOR UNKNOWN INDICATION
  2. SODIUM SALICYLATE ECT [Suspect]
     Indication: PRODUCT USED FOR UNKNOWN INDICATION
  3. CITALOPRAM HYDROBROMIDE [Suspect]
     Indication: PRODUCT USED FOR UNKNOWN INDICATION

REACTIONS (7)
  - SCAR [None]
  - PULMONARY OEDEMA [None]
  - TOXICITY TO VARIOUS AGENTS [None]
  - EXCORIATION [None]
  - COMPLETED SUICIDE [None]
  - CONTUSION [None]
  - INTENTIONAL OVERDOSE [None]
